FAERS Safety Report 19876709 (Version 2)
Quarter: 2021Q4

REPORT INFORMATION
  Report Type: Report from Study
  Country: BR (occurrence: BR)
  Receive Date: 20210923
  Receipt Date: 20211027
  Transmission Date: 20220303
  Serious: Yes (Other)
  Sender: FDA-Public Use
  Company Number: NVSC2021BR175014

PATIENT
  Age: 85 Year
  Sex: Female
  Weight: 65 kg

DRUGS (13)
  1. EXELON [Suspect]
     Active Substance: RIVASTIGMINE TARTRATE
     Indication: Dementia Alzheimer^s type
     Dosage: 4.6 MG, QD
     Route: 065
  2. EXELON [Suspect]
     Active Substance: RIVASTIGMINE TARTRATE
     Dosage: UNK UNK, Q24H
     Route: 065
     Dates: start: 20201201, end: 202104
  3. EXELON [Suspect]
     Active Substance: RIVASTIGMINE TARTRATE
     Dosage: UNK (5 AS REPORTED)
     Route: 065
     Dates: start: 20210512, end: 20210711
  4. GLIFAGE [Concomitant]
     Active Substance: METFORMIN HYDROCHLORIDE
     Indication: Diabetes mellitus
     Dosage: 3 DF, QD
     Route: 048
  5. INSULIN NOS [Concomitant]
     Active Substance: INSULIN NOS
     Indication: Diabetes mellitus
     Dosage: 10 IU, QD
     Route: 058
  6. BENICAR [Concomitant]
     Active Substance: OLMESARTAN MEDOXOMIL
     Indication: Hypertension
     Dosage: 1 DF, QD
     Route: 048
  7. INDAPAMIDE [Concomitant]
     Active Substance: INDAPAMIDE
     Indication: Diuretic therapy
     Dosage: 1 DF, QD
     Route: 048
  8. LINAGLIPTIN [Concomitant]
     Active Substance: LINAGLIPTIN
     Indication: Diabetes mellitus
     Dosage: 1 DF, QD
     Route: 048
  9. NEOVITE LUTEIN [Concomitant]
     Indication: Visual impairment
     Dosage: 1 DF, QD
     Route: 048
  10. FLABOIDO [Concomitant]
     Indication: Varicose vein
     Dosage: 2 DF, QD
     Route: 048
  11. ECASIL [Concomitant]
     Indication: Product used for unknown indication
     Dosage: 1 DF, QD
     Route: 048
  12. ALDACTONE [Concomitant]
     Active Substance: SPIRONOLACTONE
     Indication: Diuretic therapy
     Dosage: 1 DF, QD
     Route: 048
  13. SOAP [Concomitant]
     Active Substance: SOAP
     Indication: Skin irritation
     Dosage: UNK
     Route: 065

REACTIONS (12)
  - Application site swelling [Recovered/Resolved]
  - Application site pruritus [Recovered/Resolved]
  - Application site erythema [Recovered/Resolved]
  - Application site injury [Recovered/Resolved]
  - Skin discolouration [Unknown]
  - Dry skin [Unknown]
  - Wound [Unknown]
  - Scar [Unknown]
  - Hypersensitivity [Unknown]
  - Erythema [Unknown]
  - Pruritus [Unknown]
  - Swelling [Unknown]

NARRATIVE: CASE EVENT DATE: 20201201
